FAERS Safety Report 26157313 (Version 1)
Quarter: 2025Q4

REPORT INFORMATION
  Report Type: Spontaneous
  Country: US (occurrence: US)
  Receive Date: 20251215
  Receipt Date: 20251215
  Transmission Date: 20260118
  Serious: Yes (Life-Threatening, Hospitalization)
  Sender: MYLAN
  Company Number: US-MYLANLABS-2025M1104300

PATIENT
  Age: 69 Year
  Sex: Female

DRUGS (11)
  1. ACETAZOLAMIDE [Suspect]
     Active Substance: ACETAZOLAMIDE
     Indication: Arrhythmia prophylaxis
     Dosage: UNK; INITIALLY CONTINUED, LATER STOPPED
  2. AMIODARONE HYDROCHLORIDE [Suspect]
     Active Substance: AMIODARONE HYDROCHLORIDE
     Indication: Arrhythmia prophylaxis
     Dosage: UNK; INFUSION
  3. SODIUM BICARBONATE [Interacting]
     Active Substance: SODIUM BICARBONATE
     Indication: Arrhythmia prophylaxis
     Dosage: UNK; LAST DOSE OF SODIUM BICARBONATE WAS GIVEN AT HOSPITAL HOUR 37
  4. SODIUM CHLORIDE [Suspect]
     Active Substance: SODIUM CHLORIDE
     Indication: Arrhythmia prophylaxis
     Dosage: UNK
  5. FLECAINIDE [Interacting]
     Active Substance: FLECAINIDE
     Indication: Atrial fibrillation
     Dosage: 50 MILLIGRAM, BID
  6. FLECAINIDE [Interacting]
     Active Substance: FLECAINIDE
     Indication: Atrial flutter
     Dosage: 100 MILLIGRAM, BID
  7. LIDOCAINE [Concomitant]
     Active Substance: LIDOCAINE
     Indication: Arrhythmia
     Dosage: 1 MILLIGRAM/KILOGRAM; BOLUS
  8. LIDOCAINE [Concomitant]
     Active Substance: LIDOCAINE
     Dosage: UNK; CONTINUOUS INFUSION
  9. SALINE [Concomitant]
     Active Substance: SODIUM CHLORIDE
     Indication: Arrhythmia prophylaxis
     Dosage: UNK; ADMINISTERED INTERMITTENTLY UNTIL 29HRS INTO HOSPITAL COURSE
  10. EPINEPHRINE [Concomitant]
     Active Substance: EPINEPHRINE
     Indication: Tachycardia
     Dosage: 1 MILLIGRAM
  11. EPINEPHRINE [Concomitant]
     Active Substance: EPINEPHRINE
     Dosage: UNK

REACTIONS (2)
  - Drug ineffective [Unknown]
  - Product prescribing issue [Unknown]
